FAERS Safety Report 9726329 (Version 2)
Quarter: 2014Q1

REPORT INFORMATION
  Report Type: Spontaneous
  Country: US (occurrence: US)
  Receive Date: 20131203
  Receipt Date: 20140221
  Transmission Date: 20141002
  Serious: Yes (Hospitalization)
  Sender: FDA-Public Use
  Company Number: US-BAYER-2013-145049

PATIENT
  Age: 46 Year
  Sex: Female
  Weight: 113.38 kg

DRUGS (5)
  1. MIRENA [Suspect]
     Indication: CONTRACEPTION
     Dosage: 20 MCG/24HR, CONT
     Route: 015
     Dates: start: 200904, end: 20110525
  2. NEXIUM [Concomitant]
  3. IBUPROFEN [Concomitant]
  4. ROBAXIN [Concomitant]
  5. PERCOCET [Concomitant]

REACTIONS (9)
  - Hormone level abnormal [None]
  - Depression [None]
  - Anxiety [None]
  - Hot flush [None]
  - Uterine perforation [None]
  - Injury [None]
  - Infertility [None]
  - Amenorrhoea [None]
  - Premature menopause [None]
